FAERS Safety Report 7842808-6 (Version None)
Quarter: 2011Q4

REPORT INFORMATION
  Report Type: 
  Country: None (occurrence: None)
  Receive Date: 20111025
  Receipt Date: 20111012
  Transmission Date: 20120403
  Serious: Yes (Hospitalization, Other)
  Sender: FDA-Public Use
  Company Number: US-BAYER-2011-027492

PATIENT
  Age: 34 Year
  Sex: Female
  Weight: 72.562 kg

DRUGS (18)
  1. SULFAMETHOXAZOLE AND TRIMETHOPRIM [Concomitant]
  2. ALBUTEROL [Concomitant]
     Dosage: FOUR TIMES A DAY OR AS NEEDED
  3. VENTOLIN [Concomitant]
     Dosage: UNK UNK, PRN
  4. MEDICATIONS FOR MIGRAINES [Concomitant]
     Dosage: UNK UNK, PRN
  5. METHYLDOPA [Concomitant]
     Dosage: 250 MG, TABLET, BID
     Dates: start: 20060101, end: 20090101
  6. DIURETICS [Concomitant]
  7. BENZONATATE [Concomitant]
     Dosage: 200 MG, CAPSULE
  8. DOXYCYCLINE HYCLATE [DOXYCYCLINE HYCLATE] [Concomitant]
     Dosage: 100 MG, CAPSULE
  9. YAZ [Suspect]
     Indication: PREMENSTRUAL SYNDROME
     Dosage: UNK
     Dates: start: 20080501, end: 20100201
  10. YAZ [Suspect]
  11. YASMIN [Suspect]
     Dosage: UNK
     Dates: start: 20060501, end: 20080401
  12. YASMIN [Suspect]
     Indication: PREMENSTRUAL SYNDROME
     Dosage: UNK
     Dates: start: 20051101
  13. ADVAIR DISKUS 100/50 [Concomitant]
     Dosage: TWICE A DAY OR AS NEEDED
  14. PROMETHAZINE [Concomitant]
     Dosage: 25 MG, TABLET
  15. HYDROCODONE BITARTRATE AND ACETAMINOPHEN [Concomitant]
     Dosage: 5-500 TABLET
  16. NAPROXEN [Concomitant]
     Dosage: UNK UNK, PRN
  17. RANITIDINE [Concomitant]
     Indication: GASTROOESOPHAGEAL REFLUX DISEASE
     Dosage: 150 MG, TABLET, BID
     Dates: start: 20061201
  18. OMEPRAZOLE [Concomitant]
     Dosage: 20 MG, CAPSULE

REACTIONS (4)
  - NAUSEA [None]
  - VOMITING [None]
  - ABDOMINAL PAIN UPPER [None]
  - CHOLECYSTITIS CHRONIC [None]
